FAERS Safety Report 18798670 (Version 2)
Quarter: 2021Q3

REPORT INFORMATION
  Report Type: Spontaneous
  Country: IT (occurrence: IT)
  Receive Date: 20210128
  Receipt Date: 20210916
  Transmission Date: 20211014
  Serious: Yes (Other)
  Sender: FDA-Public Use
  Company Number: IT-SUN PHARMACEUTICAL INDUSTRIES LTD-2019RR-217786

PATIENT
  Age: 53 Year
  Sex: Male

DRUGS (18)
  1. MELPHALAN. [Suspect]
     Active Substance: MELPHALAN
     Indication: DIFFUSE LARGE B-CELL LYMPHOMA
     Dosage: 280 MILLIGRAM, UNK
     Route: 065
     Dates: start: 20181028
  2. VENETOCLAX. [Suspect]
     Active Substance: VENETOCLAX
     Indication: DIFFUSE LARGE B-CELL LYMPHOMA
     Dosage: UNK
     Route: 065
     Dates: start: 20190218, end: 20190514
  3. CYCLOPHOSPHAMIDE. [Concomitant]
     Active Substance: CYCLOPHOSPHAMIDE
     Indication: PRODUCT USED FOR UNKNOWN INDICATION
     Dosage: ()
     Route: 065
     Dates: start: 20170713, end: 20171026
  4. OXALIPLATIN. [Suspect]
     Active Substance: OXALIPLATIN
     Indication: DIFFUSE LARGE B-CELL LYMPHOMA
     Dosage: UNK
     Route: 065
     Dates: start: 20180302, end: 20180504
  5. DEXAMETHASONE. [Suspect]
     Active Substance: DEXAMETHASONE
     Indication: DIFFUSE LARGE B-CELL LYMPHOMA
     Dosage: UNK
     Route: 065
     Dates: start: 20180302, end: 20180504
  6. LENALIDOMIDE [Suspect]
     Active Substance: LENALIDOMIDE
     Indication: DIFFUSE LARGE B-CELL LYMPHOMA
     Dosage: UNK
     Route: 065
     Dates: start: 20180611, end: 20180806
  7. PREDNISONE. [Concomitant]
     Active Substance: PREDNISONE
     Indication: PRODUCT USED FOR UNKNOWN INDICATION
     Dosage: UNK
     Route: 065
     Dates: start: 20170713, end: 20171026
  8. RITUXIMAB. [Suspect]
     Active Substance: RITUXIMAB
     Indication: DIFFUSE LARGE B-CELL LYMPHOMA
     Dosage: UNK
     Route: 065
     Dates: start: 20180302, end: 20180504
  9. RITUXIMAB. [Suspect]
     Active Substance: RITUXIMAB
     Dosage: UNK
     Route: 065
     Dates: start: 20171207
  10. IMBRUVICA [Suspect]
     Active Substance: IBRUTINIB
     Indication: DIFFUSE LARGE B-CELL LYMPHOMA
     Dosage: UNK
     Route: 048
     Dates: start: 20190218, end: 20190514
  11. CYTARABINE. [Suspect]
     Active Substance: CYTARABINE
     Indication: DIFFUSE LARGE B-CELL LYMPHOMA
     Dosage: ()
     Route: 065
     Dates: start: 20180302, end: 20180504
  12. RITUXIMAB. [Suspect]
     Active Substance: RITUXIMAB
     Dosage: UNK
     Route: 065
     Dates: start: 20180611, end: 20180806
  13. RITUXIMAB. [Suspect]
     Active Substance: RITUXIMAB
     Dosage: UNK
     Route: 065
     Dates: start: 20170713, end: 20171026
  14. FOTEMUSTINE [Suspect]
     Active Substance: FOTEMUSTINE
     Indication: DIFFUSE LARGE B-CELL LYMPHOMA
     Dosage: 300 MILLIGRAM, DAILY
     Route: 065
     Dates: start: 20181028
  15. METHOTREXATE. [Suspect]
     Active Substance: METHOTREXATE
     Indication: DIFFUSE LARGE B-CELL LYMPHOMA
     Dosage: ()
     Route: 065
  16. ADRIAMYCIN [Concomitant]
     Active Substance: DOXORUBICIN HYDROCHLORIDE
     Indication: PRODUCT USED FOR UNKNOWN INDICATION
     Dosage: UNK
     Route: 065
     Dates: start: 20170713, end: 20171026
  17. IRINOTECAN [Concomitant]
     Active Substance: IRINOTECAN
     Indication: PRODUCT USED FOR UNKNOWN INDICATION
     Dosage: UNK
     Route: 065
  18. VINCRISTINE [Concomitant]
     Active Substance: VINCRISTINE
     Indication: PRODUCT USED FOR UNKNOWN INDICATION
     Dosage: UNK
     Route: 065
     Dates: start: 20170713, end: 20171026

REACTIONS (5)
  - Diffuse large B-cell lymphoma [Unknown]
  - Platelet count decreased [Unknown]
  - Neutrophil count decreased [Unknown]
  - Disease progression [Unknown]
  - White blood cell count decreased [Unknown]

NARRATIVE: CASE EVENT DATE: 2019
